FAERS Safety Report 8030364-1 (Version None)
Quarter: 2012Q1

REPORT INFORMATION
  Report Type: 
  Country: None (occurrence: None)
  Receive Date: 20120109
  Receipt Date: 20120109
  Transmission Date: 20120608
  Serious: No
  Sender: FDA-Public Use
  Company Number: None

PATIENT
  Age: 65 Year
  Sex: Male
  Weight: 92.986 kg

DRUGS (1)
  1. CATAPRES-TTS-3 [Suspect]
     Indication: HYPERTENSION
     Dosage: 1 PATCH
     Route: 062
     Dates: start: 20110101, end: 20110201

REACTIONS (2)
  - PRODUCT ADHESION ISSUE [None]
  - PRODUCT SUBSTITUTION ISSUE [None]
